FAERS Safety Report 7387238-9 (Version None)
Quarter: 2011Q1

REPORT INFORMATION
  Report Type: 
  Country: None (occurrence: None)
  Receive Date: 20110331
  Receipt Date: 20110325
  Transmission Date: 20110831
  Serious: Yes (Other)
  Sender: FDA-Public Use
  Company Number: JP-PFIZER INC-2011059569

PATIENT
  Age: 72 Year
  Sex: Female
  Weight: 47 kg

DRUGS (7)
  1. AMLODIPINE [Concomitant]
     Indication: HYPERTENSION
     Dosage: 5 MG, 1X/DAY
     Route: 048
  2. SIMVASTATIN [Concomitant]
     Indication: HYPERLIPIDAEMIA
     Dosage: 5 MG, 1X/DAY
     Route: 048
  3. METHYCOBAL [Concomitant]
     Indication: POST HERPETIC NEURALGIA
     Dosage: 500 UG, 3X/DAY
     Route: 048
     Dates: start: 20110316
  4. ACICLOVIR [Concomitant]
     Indication: HERPES ZOSTER
     Dosage: 250 MG, 3X/DAY
     Route: 041
     Dates: start: 20110316, end: 20110322
  5. LYRICA [Suspect]
     Indication: POST HERPETIC NEURALGIA
     Dosage: 75 MG, 2X/DAY
     Route: 048
     Dates: start: 20110316, end: 20110317
  6. LOXONIN [Concomitant]
     Indication: BACK PAIN
     Dosage: 60 MG, 3X/DAY
     Route: 048
  7. MUCOSTA [Concomitant]
     Indication: BACK PAIN
     Dosage: 100 MG, 3X/DAY
     Route: 048

REACTIONS (2)
  - DRUG ADMINISTRATION ERROR [None]
  - DEPRESSED LEVEL OF CONSCIOUSNESS [None]
